FAERS Safety Report 24338406 (Version 1)
Quarter: 2024Q3

REPORT INFORMATION
  Report Type: Spontaneous
  Country: BE (occurrence: BE)
  Receive Date: 20240919
  Receipt Date: 20240919
  Transmission Date: 20241017
  Serious: Yes (Death, Congenital Anomaly, Other)
  Sender: AUROBINDO
  Company Number: BE-AstraZeneca-2001AP02845

PATIENT
  Age: 1 Day
  Sex: Female
  Weight: 2.2 kg

DRUGS (4)
  1. LOSARTAN [Suspect]
     Active Substance: LOSARTAN\LOSARTAN POTASSIUM
     Indication: Product used for unknown indication
     Dosage: UNK
     Route: 064
  2. FELODIPINE [Suspect]
     Active Substance: FELODIPINE
     Indication: Product used for unknown indication
     Dosage: UNK
     Route: 064
  3. HYDROCHLOROTHIAZIDE [Suspect]
     Active Substance: HYDROCHLOROTHIAZIDE
     Indication: Product used for unknown indication
     Dosage: UNK
     Route: 064
  4. METOPROLOL [Suspect]
     Active Substance: METOPROLOL
     Indication: Product used for unknown indication
     Dosage: UNK
     Route: 064

REACTIONS (9)
  - Congenital musculoskeletal disorder of limbs [Fatal]
  - Neonatal anuria [Fatal]
  - Neonatal respiratory failure [Fatal]
  - Potter^s syndrome [Fatal]
  - Pulmonary hypertension [Fatal]
  - Ultrasound kidney abnormal [Fatal]
  - Exposure during pregnancy [Fatal]
  - Neonatal respiratory distress syndrome [Unknown]
  - Lung disorder [Unknown]
